FAERS Safety Report 18813271 (Version 2)
Quarter: 2021Q1

REPORT INFORMATION
  Report Type: Report from Study
  Country: JP (occurrence: JP)
  Receive Date: 20210131
  Receipt Date: 20210310
  Transmission Date: 20210419
  Serious: Yes (Other)
  Sender: FDA-Public Use
  Company Number: JP-SAKK-2020SA299304AA

PATIENT
  Age: 74 Year
  Sex: Male
  Weight: 75.8 kg

DRUGS (36)
  1. DEXAMETHASONE. [Concomitant]
     Active Substance: DEXAMETHASONE
     Indication: PLASMA CELL MYELOMA
     Dosage: 20 MG, QW
     Route: 065
     Dates: start: 20201021, end: 20201028
  2. DEXAMETHASONE. [Concomitant]
     Active Substance: DEXAMETHASONE
     Dosage: DAILY DOSAGE: 8 MG
     Route: 065
     Dates: start: 20201111, end: 20201111
  3. AZUNOL [SODIUM GUALENATE] [Concomitant]
     Active Substance: SODIUM GUALENATE
     Indication: PRODUCT USED FOR UNKNOWN INDICATION
     Dosage: UNK
     Route: 065
  4. ISATUXIMAB [Suspect]
     Active Substance: ISATUXIMAB
     Dosage: 10 MG/KG, QOW
     Route: 041
     Dates: start: 20201118, end: 20201216
  5. DEXAMETHASONE. [Concomitant]
     Active Substance: DEXAMETHASONE
     Dosage: DAILY DOSAGE: 12 MG
     Route: 065
     Dates: start: 20201104, end: 20201104
  6. DEXAMETHASONE. [Concomitant]
     Active Substance: DEXAMETHASONE
     Dosage: 8 MG, QOW
     Route: 065
     Dates: start: 20201118, end: 20201216
  7. POMALIDOMIDE [Concomitant]
     Active Substance: POMALIDOMIDE
     Dosage: DAILY DOSAGE: 4 MG
     Route: 065
     Dates: start: 20201118, end: 20201201
  8. FEBURIC [Concomitant]
     Active Substance: FEBUXOSTAT
     Indication: PRODUCT USED FOR UNKNOWN INDICATION
     Dosage: 2 T, QD
     Route: 048
  9. METHYCOBAL [Concomitant]
     Active Substance: METHYLCOBALAMIN
     Indication: PRODUCT USED FOR UNKNOWN INDICATION
     Dosage: 500 UG, TID
     Route: 065
  10. ISATUXIMAB [Suspect]
     Active Substance: ISATUXIMAB
     Dosage: 10 MG/KG
     Route: 041
     Dates: start: 20210120
  11. CRAVIT [Concomitant]
     Active Substance: LEVOFLOXACIN
     Indication: PRODUCT USED FOR UNKNOWN INDICATION
     Dosage: UNK
     Route: 047
  12. ORGADRONE [DEXAMETHASONE SODIUM PHOSPHATE] [Concomitant]
     Indication: PRODUCT USED FOR UNKNOWN INDICATION
     Dosage: UNK
     Route: 047
  13. GRAN [FILGRASTIM] [Concomitant]
     Active Substance: FILGRASTIM
     Indication: INFECTION PROPHYLAXIS
     Dosage: UNK
     Route: 065
     Dates: start: 20201216, end: 20201216
  14. BAKTAR [Concomitant]
     Active Substance: SULFAMETHOXAZOLE\TRIMETHOPRIM
     Indication: INFECTION PROPHYLAXIS
     Dosage: 1 T (1 X) SATURDAY, SUNDAY (DAILY DOSAGE: 400 MG)
     Route: 048
     Dates: start: 201804
  15. URSO [Concomitant]
     Active Substance: URSODIOL
     Indication: PRODUCT USED FOR UNKNOWN INDICATION
     Dosage: 2 T, TID
     Route: 048
  16. ISATUXIMAB [Suspect]
     Active Substance: ISATUXIMAB
     Indication: PLASMA CELL MYELOMA
     Dosage: 10 MG/KG, QW
     Route: 041
     Dates: start: 20201021, end: 20201111
  17. POMALIDOMIDE [Concomitant]
     Active Substance: POMALIDOMIDE
     Indication: PLASMA CELL MYELOMA
     Dosage: DAILY DOSAGE: 4 MG
     Route: 065
     Dates: start: 20201021, end: 20201027
  18. GASTER [Concomitant]
     Active Substance: FAMOTIDINE
     Indication: CHEMOTHERAPY SIDE EFFECT PROPHYLAXIS
     Dosage: DAILY DOSAGE: 20 MG
     Route: 065
     Dates: start: 20201021
  19. DEXAMETHASONE. [Concomitant]
     Active Substance: DEXAMETHASONE
     Dosage: DAILY DOSAGE: 8 MG
     Route: 065
     Dates: start: 20210120
  20. POMALIDOMIDE [Concomitant]
     Active Substance: POMALIDOMIDE
     Dosage: DAILY DOSAGE: 4 MG
     Route: 065
     Dates: start: 20201028, end: 20201103
  21. ACELIO [Concomitant]
     Active Substance: ACETAMINOPHEN
     Indication: CHEMOTHERAPY SIDE EFFECT PROPHYLAXIS
     Dosage: DAILY DOSAGE: 1000 MG
     Route: 065
     Dates: start: 20201021
  22. POLARAMINE [Concomitant]
     Active Substance: DEXCHLORPHENIRAMINE MALEATE
     Indication: CHEMOTHERAPY SIDE EFFECT PROPHYLAXIS
     Dosage: DAILY DOSAGE: 5 MG
     Route: 065
     Dates: start: 20201021
  23. GRAN [FILGRASTIM] [Concomitant]
     Active Substance: FILGRASTIM
     Indication: NEUTROPHIL COUNT DECREASED
     Dosage: UNK
     Route: 065
     Dates: start: 20210106, end: 20210106
  24. GRAN [FILGRASTIM] [Concomitant]
     Active Substance: FILGRASTIM
     Dosage: UNK
     Route: 065
     Dates: start: 20201202, end: 20201202
  25. GRAN [FILGRASTIM] [Concomitant]
     Active Substance: FILGRASTIM
     Dosage: DAILY DOSAGE: 75 UG
     Route: 065
     Dates: start: 20210106, end: 20210106
  26. LANSOPRAZOLE. [Concomitant]
     Active Substance: LANSOPRAZOLE
     Indication: PRODUCT USED FOR UNKNOWN INDICATION
     Dosage: 15 MG, QD
     Route: 048
  27. GRAN [FILGRASTIM] [Concomitant]
     Active Substance: FILGRASTIM
     Dosage: UNK
     Route: 065
     Dates: start: 20201118, end: 20201118
  28. POMALIDOMIDE [Concomitant]
     Active Substance: POMALIDOMIDE
     Dosage: DAILY DOSAGE: 4 MG
     Route: 065
     Dates: start: 20201104, end: 20201110
  29. POMALIDOMIDE [Concomitant]
     Active Substance: POMALIDOMIDE
     Dosage: DAILY DOSAGE: 4 MG
     Route: 065
     Dates: start: 20201202, end: 20201208
  30. BRONUCK [Concomitant]
     Active Substance: BROMFENAC SODIUM
     Indication: PRODUCT USED FOR UNKNOWN INDICATION
     Dosage: UNK
     Route: 047
  31. NORVASC [Concomitant]
     Active Substance: AMLODIPINE BESYLATE
     Indication: PRODUCT USED FOR UNKNOWN INDICATION
     Dosage: 2.5 MG, QD
     Route: 048
  32. LIXIANA OD [Concomitant]
     Active Substance: EDOXABAN TOSYLATE
     Indication: PRODUCT USED FOR UNKNOWN INDICATION
     Dosage: 30 MG, QD
     Route: 048
  33. ZOVIRAX [Concomitant]
     Active Substance: ACYCLOVIR
     Indication: INFECTION PROPHYLAXIS
     Dosage: 200 MG, QD
     Route: 065
     Dates: start: 201804
  34. POMALIDOMIDE [Concomitant]
     Active Substance: POMALIDOMIDE
     Dosage: DAILY DOSAGE: 4 MG
     Route: 065
     Dates: start: 20201216, end: 20210105
  35. POMALIDOMIDE [Concomitant]
     Active Substance: POMALIDOMIDE
     Dosage: DAILY DOSAGE: 3 MG
     Route: 065
     Dates: start: 20210120, end: 20210126
  36. GRAN [FILGRASTIM] [Concomitant]
     Active Substance: FILGRASTIM
     Dosage: UNK
     Route: 065
     Dates: start: 20201111, end: 20201111

REACTIONS (5)
  - Cold sweat [Recovered/Resolved]
  - Blood pressure decreased [Recovered/Resolved]
  - Hypoxia [Recovered/Resolved]
  - Oxygen saturation decreased [Recovered/Resolved]
  - Infusion related reaction [Recovered/Resolved]

NARRATIVE: CASE EVENT DATE: 20201021
